FAERS Safety Report 5193796-5 (Version None)
Quarter: 2006Q4

REPORT INFORMATION
  Report Type: 
  Country: None (occurrence: None)
  Receive Date: 20061228
  Receipt Date: 20061218
  Transmission Date: 20070319
  Serious: Yes (Disabling)
  Sender: FDA-Public Use
  Company Number: DK-ELI_LILLY_AND_COMPANY-DK200612003233

PATIENT

DRUGS (1)
  1. FONTEX [Suspect]
     Dosage: 20 MG, DAILY (1/D)
     Route: 064
     Dates: start: 20050101

REACTIONS (2)
  - DRUG EXPOSURE DURING PREGNANCY [None]
  - HYPOACUSIS [None]
